FAERS Safety Report 4963756-5 (Version None)
Quarter: 2006Q1

REPORT INFORMATION
  Report Type: 
  Country: None (occurrence: None)
  Receive Date: 20060330
  Receipt Date: 20060314
  Transmission Date: 20060701
  Serious: Yes (Hospitalization)
  Sender: FDA-Public Use
  Company Number: S06-FRA-01201-01

PATIENT
  Age: 55 Year
  Sex: Male

DRUGS (3)
  1. SEROPLEX (ESCITALOPRAM) [Suspect]
     Dosage: 20 MG QD PO
     Route: 048
     Dates: start: 20060201, end: 20060228
  2. BENZODIAZEPRINE [Suspect]
  3. ATHYMIL (MIANSERIN HYDROCHLORIDE) [Suspect]
     Dates: start: 20060201

REACTIONS (2)
  - PROSTATIC ADENOMA [None]
  - URINARY RETENTION [None]
